FAERS Safety Report 6539850-4 (Version None)
Quarter: 2010Q1

REPORT INFORMATION
  Report Type: 
  Country: None (occurrence: None)
  Receive Date: 20100111
  Receipt Date: 20100105
  Transmission Date: 20100710
  Serious: Yes (Other)
  Sender: FDA-Public Use
  Company Number: A0837669A

PATIENT
  Age: 73 Year
  Sex: Female

DRUGS (1)
  1. CALCIUM CARBONATE [Suspect]
     Indication: DYSPEPSIA
     Dosage: 5 TABLET / SINGLE DOSE / ORAL
     Route: 048
     Dates: start: 20100102, end: 20100102

REACTIONS (2)
  - HAEMATEMESIS [None]
  - OESOPHAGEAL PAIN [None]
